FAERS Safety Report 8812400 (Version 2)
Quarter: 2012Q4

REPORT INFORMATION
  Report Type: 
  Country: JP (occurrence: JP)
  Receive Date: 20120927
  Receipt Date: 20121011
  Transmission Date: 20130627
  Serious: No
  Sender: FDA-Public Use
  Company Number: JP-JNJFOC-20120910588

PATIENT
  Age: 3 None
  Sex: Male

DRUGS (3)
  1. REMICADE [Suspect]
     Indication: CROHN^S DISEASE
     Dosage: 27th dose.
     Route: 042
     Dates: start: 20120720, end: 20120720
  2. REMICADE [Suspect]
     Indication: CROHN^S DISEASE
     Route: 042
     Dates: start: 200807
  3. PENTASA [Concomitant]
     Route: 065

REACTIONS (1)
  - Herpes zoster [Recovering/Resolving]
